FAERS Safety Report 7551550-0 (Version None)
Quarter: 2011Q2

REPORT INFORMATION
  Report Type: 
  Country: None (occurrence: None)
  Receive Date: 20110616
  Receipt Date: 20110613
  Transmission Date: 20111010
  Serious: Yes (Death, Hospitalization)
  Sender: FDA-Public Use
  Company Number: PHHY2011CA48715

PATIENT
  Sex: Female

DRUGS (5)
  1. SANDOSTATIN LAR [Suspect]
     Dosage: 20 MG, EVERY 4 WEEKS
     Route: 030
     Dates: start: 20110511, end: 20110603
  2. SANDOSTATIN LAR [Suspect]
     Indication: METASTATIC CARCINOID TUMOUR
     Route: 030
     Dates: start: 20110428
  3. SANDOSTATIN [Suspect]
     Indication: METASTATIC CARCINOID TUMOUR
     Route: 058
     Dates: start: 20110428
  4. MORPHINE [Concomitant]
  5. DECADRON [Concomitant]

REACTIONS (3)
  - TERMINAL STATE [None]
  - INTESTINAL OBSTRUCTION [None]
  - NEOPLASM MALIGNANT [None]
